FAERS Safety Report 7399928-2 (Version None)
Quarter: 2011Q2

REPORT INFORMATION
  Report Type: 
  Country: None (occurrence: None)
  Receive Date: 20110407
  Receipt Date: 20110324
  Transmission Date: 20111010
  Serious: No
  Sender: FDA-Public Use
  Company Number: US-JNJFOC-20110310902

PATIENT
  Sex: Female

DRUGS (3)
  1. DURAGESIC [Suspect]
     Dosage: 25UG/HR+12.5UG/HR
     Route: 062
  2. DURAGESIC [Suspect]
     Indication: PAIN
     Route: 062
  3. DURAGESIC [Suspect]
     Dosage: 25UG/HR+12.5UG/HR
     Route: 062

REACTIONS (4)
  - DRUG DOSE OMISSION [None]
  - HYPERHIDROSIS [None]
  - PRODUCT QUALITY ISSUE [None]
  - MALAISE [None]
